FAERS Safety Report 4273667-9 (Version None)
Quarter: 2004Q1

REPORT INFORMATION
  Report Type: 
  Country: None (occurrence: None)
  Receive Date: 20040114
  Receipt Date: 20031229
  Transmission Date: 20041129
  Serious: Yes (Hospitalization)
  Sender: FDA-Public Use
  Company Number: 2003-BP-10862RO

PATIENT
  Age: 51 Year
  Sex: Male

DRUGS (4)
  1. LEUCOVORIN CALCIUM [Suspect]
     Indication: GASTRIC CANCER
     Dosage: 90 MG/CYCLE (NR), PO
     Route: 048
     Dates: start: 20031003, end: 20031218
  2. TAXOL [Suspect]
     Indication: GASTRIC CANCER
     Dosage: 192 MG/CYCLE (NR), IV
     Route: 042
     Dates: start: 20031003, end: 20031212
  3. UFT [Suspect]
     Indication: GASTRIC CANCER
     Dosage: 600 MG/CYCLE (NR), PO
     Route: 048
     Dates: start: 20031003, end: 20031218
  4. METOCLOPRAMIDE [Suspect]

REACTIONS (2)
  - ERYTHEMA [None]
  - SKIN DESQUAMATION [None]
